FAERS Safety Report 5105242-8 (Version None)
Quarter: 2006Q3

REPORT INFORMATION
  Report Type: 
  Country: None (occurrence: None)
  Receive Date: 20060911
  Receipt Date: 20060822
  Transmission Date: 20061208
  Serious: Yes (Hospitalization)
  Sender: FDA-Public Use
  Company Number: US200608004750

PATIENT
  Sex: Male

DRUGS (2)
  1. FORTEO [Suspect]
     Indication: OSTEOPOROSIS
     Dates: start: 20060101, end: 20060101
  2. FORTEO [Concomitant]

REACTIONS (6)
  - COORDINATION ABNORMAL [None]
  - FEELING ABNORMAL [None]
  - MUSCLE DISORDER [None]
  - MUSCULAR WEAKNESS [None]
  - PHARMACEUTICAL PRODUCT COMPLAINT [None]
  - PYREXIA [None]
